FAERS Safety Report 14288522 (Version 2)
Quarter: 2018Q1

REPORT INFORMATION
  Report Type: Spontaneous
  Country: IE (occurrence: IE)
  Receive Date: 20171215
  Receipt Date: 20180125
  Transmission Date: 20180509
  Serious: Yes (Other)
  Sender: FDA-Public Use
  Company Number: IE-AMGEN-IRLSP2017183633

PATIENT
  Age: 65 Year
  Sex: Female

DRUGS (2)
  1. ELTROXIN [Concomitant]
     Active Substance: LEVOTHYROXINE
     Indication: THYROID DISORDER
  2. PROLIA [Suspect]
     Active Substance: DENOSUMAB
     Indication: PRODUCT USED FOR UNKNOWN INDICATION
     Dosage: UNK
     Route: 065

REACTIONS (12)
  - Nasopharyngitis [Unknown]
  - Erythema [Unknown]
  - Headache [Unknown]
  - Feeling hot [Recovered/Resolved]
  - Body temperature abnormal [Unknown]
  - Feeling abnormal [Unknown]
  - Flushing [Unknown]
  - Feeling cold [Unknown]
  - Photosensitivity reaction [Unknown]
  - Loss of consciousness [Recovered/Resolved]
  - Dizziness [Unknown]
  - Fatigue [Unknown]

NARRATIVE: CASE EVENT DATE: 2017
